FAERS Safety Report 7521004-6 (Version None)
Quarter: 2011Q2

REPORT INFORMATION
  Report Type: 
  Country: None (occurrence: None)
  Receive Date: 20110603
  Receipt Date: 20101111
  Transmission Date: 20111010
  Serious: No
  Sender: FDA-Public Use
  Company Number: US-BAYER-201041499NA

PATIENT
  Age: 31 Year
  Sex: Female

DRUGS (2)
  1. MAGNEVIST [Suspect]
     Indication: NUCLEAR MAGNETIC RESONANCE IMAGING BRAIN
     Dosage: UNK
     Dates: start: 20101110, end: 20101110
  2. MAGNEVIST [Suspect]
     Indication: CONVULSION

REACTIONS (2)
  - PRURITUS [None]
  - URTICARIA [None]
